FAERS Safety Report 8874212 (Version 4)
Quarter: 2012Q4

REPORT INFORMATION
  Report Type: 
  Country: US (occurrence: US)
  Receive Date: 20121023
  Receipt Date: 20121228
  Transmission Date: 20130627
  Serious: Yes (Hospitalization)
  Sender: FDA-Public Use
  Company Number: US-ACTELION-A-NJ2012-72905

PATIENT
  Age: 72 Year
  Sex: Female

DRUGS (2)
  1. TRACLEER [Suspect]
     Indication: PULMONARY ARTERIAL HYPERTENSION
     Dosage: UNK
     Route: 048
     Dates: end: 201212
  2. COUMADIN [Concomitant]

REACTIONS (7)
  - Gastrointestinal haemorrhage [Unknown]
  - Confusional state [Unknown]
  - Epistaxis [Unknown]
  - Haemoglobin decreased [Unknown]
  - Fluid retention [Unknown]
  - Oedema [Unknown]
  - Dyspnoea [Unknown]
